FAERS Safety Report 25673378 (Version 1)
Quarter: 2025Q3

REPORT INFORMATION
  Report Type: Spontaneous
  Country: EU (occurrence: None)
  Receive Date: 20250813
  Receipt Date: 20250813
  Transmission Date: 20251021
  Serious: Yes (Hospitalization)
  Sender: ENCUBE ETHICALS
  Company Number: EU-Encube-002115

PATIENT
  Age: 14 Year
  Sex: Female

DRUGS (16)
  1. TACROLIMUS [Suspect]
     Active Substance: TACROLIMUS
     Indication: Prophylaxis against transplant rejection
  2. LAMOTRIGINE [Suspect]
     Active Substance: LAMOTRIGINE
     Indication: Petit mal epilepsy
  3. ETHOSUXIMIDE [Suspect]
     Active Substance: ETHOSUXIMIDE
     Indication: Petit mal epilepsy
  4. BASILIXIMAB [Concomitant]
     Active Substance: BASILIXIMAB
  5. METHYLPREDNISOLONE [Concomitant]
     Active Substance: METHYLPREDNISOLONE
  6. SUMATRIPTAN [Concomitant]
     Active Substance: SUMATRIPTAN
     Indication: Migraine
  7. CEFTAZIDIME [Concomitant]
     Active Substance: CEFTAZIDIME
     Indication: Evidence based treatment
  8. MEROPENEM [Concomitant]
     Active Substance: MEROPENEM
  9. FLUCONAZOLE [Concomitant]
     Active Substance: FLUCONAZOLE
     Indication: Antifungal treatment
  10. IMMUNE GLOBULIN [Concomitant]
     Indication: Anaemia
  11. ETHINYL ESTRADIOL [Concomitant]
     Active Substance: ETHINYL ESTRADIOL
     Indication: Intermenstrual bleeding
     Route: 048
  12. DIENOGEST [Concomitant]
     Active Substance: DIENOGEST
     Indication: Intermenstrual bleeding
     Route: 048
  13. PIPERACILLIN AND TAZOBACTAM [Concomitant]
     Active Substance: PIPERACILLIN SODIUM\TAZOBACTAM SODIUM
     Indication: Febrile neutropenia
  14. ITRACONAZOLE [Concomitant]
     Active Substance: ITRACONAZOLE
     Indication: Febrile neutropenia
  15. CEFTAZIDIME [Concomitant]
     Active Substance: CEFTAZIDIME
     Indication: Febrile neutropenia
  16. IMMUNE GLOBULIN [Concomitant]
     Indication: Immune thrombocytopenia

REACTIONS (3)
  - Aplastic anaemia [Unknown]
  - Myelosuppression [Unknown]
  - Off label use [Unknown]
